FAERS Safety Report 26191009 (Version 1)
Quarter: 2025Q4

REPORT INFORMATION
  Report Type: Spontaneous
  Country: US (occurrence: None)
  Receive Date: 20251222
  Receipt Date: 20251222
  Transmission Date: 20260118
  Serious: Yes (Other)
  Sender: FDA-CTU
  Company Number: None

PATIENT
  Sex: Female

DRUGS (3)
  1. HYDROXYUREA [Suspect]
     Active Substance: HYDROXYUREA
     Indication: Polycythaemia vera
     Dosage: FREQUENCY : DAILY;
     Route: 048
     Dates: start: 20171229
  2. ASPIRIN TAB 325MG EC [Concomitant]
  3. XARELTO TAB 2.5MG [Concomitant]

REACTIONS (1)
  - Skin cancer [None]
